FAERS Safety Report 4597241-X (Version None)
Quarter: 2005Q1

REPORT INFORMATION
  Report Type: 
  Country: None (occurrence: None)
  Receive Date: 20050301
  Receipt Date: 20050216
  Transmission Date: 20050727
  Serious: Yes (Hospitalization)
  Sender: FDA-Public Use
  Company Number: 212259

PATIENT
  Age: 34 Year
  Sex: Female

DRUGS (1)
  1. EFALIZUMAB (EFALIZUMAB) PWDR + SOLVENT, INJECTION SOLN, 125MG [Suspect]
     Indication: PSORIASIS
     Dosage: 1 MG/KG, 1/WEEK, SUBCUTANEOUS
     Route: 058
     Dates: start: 20050118, end: 20050127

REACTIONS (4)
  - CHOLECYSTITIS CHRONIC [None]
  - CONDITION AGGRAVATED [None]
  - DRUG INEFFECTIVE [None]
  - SELF-MEDICATION [None]
